FAERS Safety Report 17825072 (Version 1)
Quarter: 2020Q2

REPORT INFORMATION
  Report Type: Spontaneous
  Country: US (occurrence: US)
  Receive Date: 20200526
  Receipt Date: 20200526
  Transmission Date: 20200714
  Serious: No
  Sender: FDA-Public Use
  Company Number: US-SA-2020SA133287

PATIENT
  Age: 64 Year
  Sex: Male

DRUGS (1)
  1. FLOMAX [Suspect]
     Active Substance: TAMSULOSIN HYDROCHLORIDE
     Indication: URINE ANALYSIS NORMAL
     Dosage: .4 MG, HS

REACTIONS (4)
  - Painful ejaculation [Unknown]
  - Penile curvature [Unknown]
  - Pain [Unknown]
  - Penis injury [Unknown]
